FAERS Safety Report 4522483-9 (Version None)
Quarter: 2004Q4

REPORT INFORMATION
  Report Type: 
  Country: None (occurrence: None)
  Receive Date: 20041207
  Receipt Date: 20041117
  Transmission Date: 20050328
  Serious: Yes (Other)
  Sender: FDA-Public Use
  Company Number: US_0410107342

PATIENT
  Age: 65 Year
  Sex: Female
  Weight: 61 kg

DRUGS (12)
  1. FORTEO [Suspect]
     Indication: OSTEOPOROSIS
     Dates: start: 20031001, end: 20041011
  2. VITAMINS NOS [Concomitant]
  3. SPIRONOLACOTNE (SPIRONOLACTONE) [Concomitant]
  4. CARDIZEM [Concomitant]
  5. BENTYL [Concomitant]
  6. XANAX (ALPRAZOLAM DUM) [Concomitant]
  7. NEXIUM [Concomitant]
  8. PERCOCET [Concomitant]
  9. OXYCODONE HCL [Concomitant]
  10. CARAFATE [Concomitant]
  11. PLAVIX [Concomitant]
  12. MILK OF MAGNESIA TAB [Concomitant]

REACTIONS (6)
  - ALANINE AMINOTRANSFERASE INCREASED [None]
  - ASPARTATE AMINOTRANSFERASE INCREASED [None]
  - BLOOD ALKALINE PHOSPHATASE INCREASED [None]
  - DIZZINESS [None]
  - PHARMACEUTICAL PRODUCT COMPLAINT [None]
  - POST PROCEDURAL COMPLICATION [None]
